FAERS Safety Report 5684401-X (Version None)
Quarter: 2008Q1

REPORT INFORMATION
  Report Type: 
  Country: None (occurrence: None)
  Receive Date: 20080327
  Receipt Date: 20080327
  Transmission Date: 20080703
  Serious: Yes (Life-Threatening)
  Sender: FDA-Public Use
  Company Number: None

PATIENT
  Age: 41 Year
  Sex: Male

DRUGS (1)
  1. OMNIPAQUE 300 [Suspect]
     Indication: DIAGNOSTIC PROCEDURE
     Dates: start: 20080310

REACTIONS (3)
  - DYSPNOEA [None]
  - FLUSHING [None]
  - PHARYNGEAL OEDEMA [None]
